FAERS Safety Report 12672127 (Version 1)
Quarter: 2016Q3

REPORT INFORMATION
  Report Type: Spontaneous
  Country: US (occurrence: None)
  Receive Date: 20160819
  Receipt Date: 20160819
  Transmission Date: 20161109
  Serious: Yes (Disabling)
  Sender: FDA-Public Use
  Company Number: None

PATIENT
  Age: 46 Year
  Sex: Female
  Weight: 67.59 kg

DRUGS (2)
  1. CAPECITABINE. [Suspect]
     Active Substance: CAPECITABINE
     Indication: BREAST CANCER
     Route: 048
     Dates: start: 20160426
  2. CAPECITABINE. [Suspect]
     Active Substance: CAPECITABINE
     Dosage: 500 MG 3 BID ORALLY
     Route: 048
     Dates: start: 20160426

REACTIONS (4)
  - Palmar-plantar erythrodysaesthesia syndrome [None]
  - Erythema [None]
  - Pain [None]
  - Skin exfoliation [None]

NARRATIVE: CASE EVENT DATE: 20160804
